FAERS Safety Report 8314794 (Version 3)
Quarter: 2013Q3

REPORT INFORMATION
  Report Type: Spontaneous
  Country: US (occurrence: US)
  Receive Date: 20111229
  Receipt Date: 20130723
  Transmission Date: 20140515
  Serious: Yes (Other)
  Sender: FDA-Public Use
  Company Number: US-BAYER-2011-123828

PATIENT
  Age: 44 Year
  Sex: Female

DRUGS (1)
  1. MIRENA [Suspect]
     Indication: CONTRACEPTION
     Dosage: 20 MCG/24HR, CONT
     Route: 015
     Dates: start: 20111202

REACTIONS (8)
  - Urinary tract infection [None]
  - Pollakiuria [None]
  - Urinary tract infection [None]
  - Genital haemorrhage [None]
  - Procedural haemorrhage [None]
  - Pelvic pain [Not Recovered/Not Resolved]
  - Pelvic pain [None]
  - Procedural pain [None]
